FAERS Safety Report 23520569 (Version 1)
Quarter: 2024Q1

REPORT INFORMATION
  Report Type: Report from Study
  Country: BR (occurrence: BR)
  Receive Date: 20240214
  Receipt Date: 20240214
  Transmission Date: 20240409
  Serious: Yes (Death, Hospitalization, Other)
  Sender: FDA-Public Use
  Company Number: BR-AstraZeneca-2023A184581

PATIENT
  Age: 157 Day
  Sex: Female
  Weight: 5.1 kg

DRUGS (1)
  1. SYNAGIS [Suspect]
     Active Substance: PALIVIZUMAB
     Indication: Respiratory syncytial virus immunisation
     Route: 030
     Dates: start: 202302

REACTIONS (22)
  - Cerebral palsy [Unknown]
  - Cardiac arrest [Unknown]
  - Pulmonary hypertension [Unknown]
  - Atelectasis [Unknown]
  - Pneumonia aspiration [Unknown]
  - Muscle spasms [Unknown]
  - Pyrexia [Unknown]
  - Tachycardia [Unknown]
  - Deafness [Unknown]
  - Seizure [Unknown]
  - Cerebral venous sinus thrombosis [Unknown]
  - Bronchial dysplasia [Unknown]
  - Strabismus [Unknown]
  - Muscle spasticity [Unknown]
  - Neck deformity [Unknown]
  - Dysphagia [Unknown]
  - Choking [Unknown]
  - Fatigue [Unknown]
  - Loss of consciousness [Unknown]
  - Discharge [Unknown]
  - Eye disorder [Unknown]
  - Death [Fatal]

NARRATIVE: CASE EVENT DATE: 20230623
